FAERS Safety Report 8851875 (Version 1)
Quarter: 2012Q4

REPORT INFORMATION
  Report Type: Spontaneous
  Country: CA (occurrence: None)
  Receive Date: 20121017
  Receipt Date: 20121017
  Transmission Date: 20130627
  Serious: Yes (Other)
  Sender: FDA-Public Use
  Company Number: DSU-2012-08129

PATIENT
  Age: 91 Year
  Sex: Female
  Weight: 56.7 kg

DRUGS (7)
  1. OLMETEC (OLMESARTAN MEDOXOMIL) [Suspect]
     Indication: DRUG USE FOR UNKNOWN INDICATION
     Route: 048
  2. LANSOPRAZOLE [Concomitant]
  3. ASA (ACETYLSALICYLIC ACID) [Concomitant]
  4. FUROSEMIDE [Concomitant]
  5. L-THYROXINE (LEVOTHYROXINE) [Concomitant]
  6. NIFEDIPINE [Concomitant]
  7. SPIRONOLACTONE [Concomitant]

REACTIONS (5)
  - Confusional state [None]
  - Muscular weakness [None]
  - Pain in extremity [None]
  - Somnolence [None]
  - Product substitution issue [None]
